FAERS Safety Report 5643284-4 (Version None)
Quarter: 2008Q1

REPORT INFORMATION
  Report Type: 
  Country: None (occurrence: None)
  Receive Date: 20080226
  Receipt Date: 20080109
  Transmission Date: 20080703
  Serious: Yes (Other)
  Sender: FDA-Public Use
  Company Number: 2008AL000960

PATIENT
  Age: 81 Year
  Sex: Female

DRUGS (10)
  1. BETAMETHASONE VALERATE [Suspect]
     Indication: EYE OPERATION
     Dates: start: 20070502, end: 20070502
  2. PHEYYLEPHRINE HYDROCHLORIDE NASAL SOLUTION USP, 1% (ALPHARMA) (PHENYLE [Suspect]
     Indication: CATARACT OPERATION
     Dosage: 1 DF;X1;OPH
     Route: 047
     Dates: start: 20070502, end: 20070502
  3. LIDOCAINE [Concomitant]
  4. CYCLOPENTOLATE HCL [Concomitant]
  5. NEOMYCIN [Concomitant]
  6. OCUFEN [Concomitant]
  7. VANCOMYCIN [Concomitant]
  8. HYALURONIC ACID [Concomitant]
  9. EPINEPHRINE [Concomitant]
  10. POVIDONE IODINE [Concomitant]

REACTIONS (1)
  - TOXIC ANTERIOR SEGMENT SYNDROME [None]
